FAERS Safety Report 7743170-X (Version None)
Quarter: 2011Q3

REPORT INFORMATION
  Report Type: 
  Country: None (occurrence: None)
  Receive Date: 20110912
  Receipt Date: 20110829
  Transmission Date: 20111222
  Serious: Yes (Other)
  Sender: FDA-Public Use
  Company Number: US-ROCHE-801327

PATIENT
  Age: 53 Year
  Sex: Male

DRUGS (2)
  1. CELLCEPT [Suspect]
     Indication: NEUROMYELITIS OPTICA
     Route: 042
  2. RITUXAN [Suspect]
     Dosage: DOSE AND FREQUENCY NOT REPORTED
     Route: 065

REACTIONS (1)
  - NEPHROLITHIASIS [None]
